FAERS Safety Report 16337622 (Version 1)
Quarter: 2019Q2

REPORT INFORMATION
  Report Type: Spontaneous
  Country: DK (occurrence: DK)
  Receive Date: 20190521
  Receipt Date: 20190521
  Transmission Date: 20190711
  Serious: Yes (Hospitalization)
  Sender: FDA-Public Use
  Company Number: PHHY2019DK114625

PATIENT
  Age: 80 Year
  Sex: Female

DRUGS (1)
  1. RISPERANNE [Suspect]
     Active Substance: RISPERIDONE
     Indication: HALLUCINATION, VISUAL
     Dosage: 1 MG, QD (STYRKE: 0,5 MG)
     Route: 048
     Dates: start: 201902, end: 20190406

REACTIONS (2)
  - Orthostatic intolerance [Unknown]
  - Fall [Recovering/Resolving]

NARRATIVE: CASE EVENT DATE: 201904
